FAERS Safety Report 17203838 (Version 1)
Quarter: 2019Q4

REPORT INFORMATION
  Report Type: Spontaneous
  Country: SE (occurrence: SE)
  Receive Date: 20191226
  Receipt Date: 20191226
  Transmission Date: 20200122
  Serious: Yes (Hospitalization)
  Sender: FDA-Public Use
  Company Number: SE-MYLANLABS-2019M1127174

PATIENT
  Age: 27 Year
  Sex: Female

DRUGS (3)
  1. ERGENYL RETARD                     /01294701/ [Suspect]
     Active Substance: VALPROATE SODIUM
     Indication: PRODUCT USED FOR UNKNOWN INDICATION
     Dosage: UNK
     Route: 048
     Dates: start: 20190514, end: 20190514
  2. LEVOMEPROMAZINE [Suspect]
     Active Substance: LEVOMEPROMAZINE
     Indication: PRODUCT USED FOR UNKNOWN INDICATION
     Dosage: UNK
     Route: 048
     Dates: start: 20190514, end: 20190514
  3. PROMETHAZINE [Suspect]
     Active Substance: PROMETHAZINE HYDROCHLORIDE
     Indication: PRODUCT USED FOR UNKNOWN INDICATION
     Dosage: MAX 200
     Route: 048
     Dates: start: 20190514, end: 20190514

REACTIONS (7)
  - Musculoskeletal stiffness [Unknown]
  - Pupillary reflex impaired [Unknown]
  - Intentional overdose [Unknown]
  - Intentional self-injury [Unknown]
  - Seizure [Unknown]
  - Heart rate increased [Unknown]
  - Depressed level of consciousness [Unknown]

NARRATIVE: CASE EVENT DATE: 20190514
